FAERS Safety Report 8541303-9 (Version None)
Quarter: 2012Q3

REPORT INFORMATION
  Report Type: 
  Country: None (occurrence: None)
  Receive Date: 20120726
  Receipt Date: 20120720
  Transmission Date: 20120928
  Serious: Yes (Hospitalization)
  Sender: FDA-Public Use
  Company Number: US-PFIZER INC-2009215550

PATIENT
  Sex: Female
  Weight: 92.2 kg

DRUGS (33)
  1. FLUOROMETHOLONE [Concomitant]
     Indication: EYE INFLAMMATION
     Dosage: UNK
     Route: 047
     Dates: start: 20070302
  2. SENNA [Concomitant]
     Indication: CONSTIPATION
     Dosage: UNK
     Dates: start: 20071214
  3. NORVASC [Concomitant]
     Dosage: 5 MG, UNK
  4. PIRBUTEROL ACETATE [Concomitant]
     Indication: ASTHMA
     Dosage: 0.2 MG, EVERY INHALATION
     Route: 055
     Dates: start: 20070302
  5. NEXIUM [Concomitant]
     Indication: GASTROOESOPHAGEAL REFLUX DISEASE
     Dosage: 40 MG, UNK
     Dates: start: 20070320
  6. MELATONIN [Concomitant]
     Indication: INSOMNIA
     Dosage: 3 MG, UNK
     Dates: start: 20070302
  7. PRAVASTATIN [Concomitant]
     Indication: HYPERLIPIDAEMIA
     Dosage: 20 MG, UNK
     Dates: start: 20070302
  8. ZYRTEC [Concomitant]
     Indication: ASTHMA
     Dosage: 10 MG, UNK
     Dates: start: 20070302
  9. ACETYLSALICYLIC ACID [Concomitant]
     Indication: THROMBOSIS PROPHYLAXIS
     Dosage: 81 MG, UNK
     Dates: start: 20070520
  10. MIRALAX [Concomitant]
     Indication: CONSTIPATION
     Dosage: UNK
     Dates: start: 20071214
  11. MULTI-VITAMINS [Concomitant]
     Indication: SUPPLEMENTATION THERAPY
     Dosage: UNK
     Dates: start: 20070302
  12. TYLENOL [Concomitant]
     Indication: ARTHRITIS
     Dosage: 500 MG, UNK
     Dates: start: 20070320
  13. AVAPRO [Concomitant]
     Dosage: 300 MG, UNK
  14. AMOXICILLIN [Concomitant]
     Dosage: UNK
     Dates: start: 20080408
  15. HYDROCODONE BITARTRATE + ACETAMINOPHEN [Concomitant]
     Indication: ARTHRITIS
     Dosage: 7.5MG/500MG
     Route: 048
     Dates: start: 20070320
  16. PIOGLITAZONE HYDROCHLORIDE/METFORMIN HYDROCHLORIDE [Concomitant]
     Indication: DIABETES MELLITUS
     Dosage: 800MG/15MG
     Route: 048
     Dates: start: 20070302
  17. BENADRYL [Concomitant]
     Indication: INSOMNIA
     Dosage: 25 MG, UNK
     Dates: start: 20070302
  18. DIPYRIDAMOLE [Concomitant]
     Indication: THROMBOSIS PROPHYLAXIS
     Dosage: 25 MG, UNK
     Dates: start: 20070302
  19. MAXAIR [Concomitant]
     Indication: ASTHMA
     Dosage: UNK
     Dates: start: 20070302
  20. AMITIZA [Concomitant]
     Indication: CONSTIPATION
     Dosage: UNK
     Dates: start: 20080116
  21. ADVAIR DISKUS 100/50 [Concomitant]
     Indication: CHRONIC OBSTRUCTIVE PULMONARY DISEASE
  22. BUPROPION [Concomitant]
     Indication: DEPRESSION
     Dosage: 150 MG, UNK
     Dates: start: 20070302
  23. SYNTHROID [Concomitant]
     Indication: HYPOTHYROIDISM
     Dosage: 112 UG, UNK
     Dates: start: 20070302
  24. FENTANYL [Concomitant]
     Indication: ARTHRITIS
     Dosage: 75 UG, EVERY HOUR
     Dates: start: 20070825
  25. MAGNESIUM HYDROXIDE [Concomitant]
     Indication: CONSTIPATION
     Dosage: UNK
     Dates: start: 20071214
  26. VICODIN [Concomitant]
     Dosage: 500MG/7.5MG
     Route: 048
     Dates: start: 20070320
  27. METFORMIN [Concomitant]
     Indication: DIABETES MELLITUS
     Dosage: UNK
     Dates: start: 20070302
  28. ADVAIR DISKUS 100/50 [Concomitant]
     Indication: ASTHMA
     Dosage: 250MCG/50MCG
     Dates: start: 20070302
  29. NYSTATIN [Concomitant]
     Dosage: UNK
     Route: 061
  30. AXITINIB [Suspect]
     Indication: THYROID CANCER
     Dosage: 7 MG, 2X/DAY
     Route: 048
     Dates: start: 20071116, end: 20080430
  31. AXITINIB [Suspect]
     Dosage: 5 MG, 2X/DAY, ONLY TOOK PM DOSE ON 16MAY2008
     Route: 048
     Dates: start: 20080516, end: 20090508
  32. GLIPIZIDE [Concomitant]
     Indication: DIABETES MELLITUS
     Dosage: 2.5 MG, UNK
     Dates: start: 20070320
  33. INDAPAMIDE [Concomitant]
     Dosage: 2.5 MG, UNK

REACTIONS (1)
  - SKIN ULCER [None]
